FAERS Safety Report 10598333 (Version 1)
Quarter: 2014Q4

REPORT INFORMATION
  Report Type: Spontaneous
  Country: TR (occurrence: None)
  Receive Date: 20141119
  Receipt Date: 20141119
  Transmission Date: 20150529
  Serious: Yes (Hospitalization)
  Sender: FDA-Public Use
  Company Number: 2014HINLIT1006

PATIENT
  Age: 61 Year
  Sex: Male

DRUGS (1)
  1. SILDENAFIL (SILDENAFIL) [Suspect]
     Active Substance: SILDENAFIL
     Indication: PRODUCT USED FOR UNKNOWN INDICATION

REACTIONS (6)
  - Cerebral haemorrhage [None]
  - Confusional state [None]
  - Dysarthria [None]
  - Asthenia [None]
  - Hemianopia homonymous [None]
  - Hemiparesis [None]
